FAERS Safety Report 6445162-X (Version None)
Quarter: 2009Q4

REPORT INFORMATION
  Report Type: 
  Country: None (occurrence: None)
  Receive Date: 20091118
  Receipt Date: 20091113
  Transmission Date: 20100525
  Serious: Yes (Death, Hospitalization)
  Sender: FDA-Public Use
  Company Number: FR-SANOFI-AVENTIS-200914048FR

PATIENT
  Age: 67 Year
  Sex: Male

DRUGS (4)
  1. TAXOTERE [Suspect]
     Dosage: FREQUENCY: CYCLICALLY
     Route: 042
     Dates: start: 20081009, end: 20090304
  2. ALL OTHER THERAPEUTIC PRODUCTS [Concomitant]
  3. THERAPEUTIC RADIOPHARMACEUTICALS [Concomitant]
     Dates: start: 20090115
  4. CARBOPLATIN [Concomitant]
     Dates: start: 20090115

REACTIONS (1)
  - INTERSTITIAL LUNG DISEASE [None]
